FAERS Safety Report 5614084-6 (Version None)
Quarter: 2008Q1

REPORT INFORMATION
  Report Type: 
  Country: None (occurrence: None)
  Receive Date: 20080130
  Receipt Date: 20080118
  Transmission Date: 20080703
  Serious: Yes (Life-Threatening, Other)
  Sender: FDA-Public Use
  Company Number: 2007SP025430

PATIENT
  Age: 70 Year
  Sex: Male

DRUGS (1)
  1. CLARITIN [Suspect]
     Indication: ECZEMA NUMMULAR
     Dosage: 10 MG; ; PO
     Route: 048
     Dates: start: 20071127, end: 20071127

REACTIONS (3)
  - FALL [None]
  - REACTION TO DRUG EXCIPIENTS [None]
  - SHOCK [None]
